FAERS Safety Report 4308047-0 (Version None)
Quarter: 2004Q1

REPORT INFORMATION
  Report Type: 
  Country: None (occurrence: None)
  Receive Date: 20040301
  Receipt Date: 20030410
  Transmission Date: 20041129
  Serious: No
  Sender: FDA-Public Use
  Company Number: US-BRISTOL-MYERS SQUIBB COMPANY-12237251

PATIENT
  Age: 78 Year
  Sex: Female
  Weight: 84 kg

DRUGS (5)
  1. GLUCOPHAGE [Suspect]
     Indication: DIABETES MELLITUS
     Route: 048
     Dates: start: 19990101
  2. SYNTHROID [Concomitant]
  3. TOPROL-XL [Concomitant]
  4. PROPULSID [Concomitant]
  5. PLAVIX [Concomitant]

REACTIONS (1)
  - NAUSEA [None]
